FAERS Safety Report 15731149 (Version 1)
Quarter: 2018Q4

REPORT INFORMATION
  Report Type: Spontaneous
  Country: US (occurrence: US)
  Receive Date: 20181217
  Receipt Date: 20181217
  Transmission Date: 20190205
  Serious: No
  Sender: FDA-Public Use
  Company Number: None

PATIENT
  Age: 34 Year
  Sex: Female
  Weight: 49.5 kg

DRUGS (1)
  1. CIPROFLOXACIN HCL 500 MG [Suspect]
     Active Substance: CIPROFLOXACIN HYDROCHLORIDE
     Indication: DIARRHOEA
     Dosage: ?          QUANTITY:1 TABLET(S);?
     Route: 048
     Dates: start: 20181214, end: 20181215

REACTIONS (12)
  - Cough [None]
  - Nasal pruritus [None]
  - Swollen tongue [None]
  - Lacrimation increased [None]
  - Rhinorrhoea [None]
  - Swelling face [None]
  - Ear congestion [None]
  - Eye pruritus [None]
  - Nasal obstruction [None]
  - Eye swelling [None]
  - Dyspnoea [None]
  - Self-induced vomiting [None]

NARRATIVE: CASE EVENT DATE: 20181214
